FAERS Safety Report 4577873-5 (Version None)
Quarter: 2005Q1

REPORT INFORMATION
  Report Type: 
  Country: None (occurrence: None)
  Receive Date: 20050209
  Receipt Date: 20050131
  Transmission Date: 20050727
  Serious: Yes (Other)
  Sender: FDA-Public Use
  Company Number: 2005007747

PATIENT
  Age: 35 Year
  Sex: Male

DRUGS (9)
  1. NELFINAVIR MESILATE (NELFINAVIR MESILATE) [Suspect]
     Indication: HIV INFECTION
  2. LAMIVUDINE [Suspect]
     Indication: HIV INFECTION
  3. ZIDOVUDINE [Suspect]
     Indication: HIV INFECTION
     Dosage: (100 MG)
  4. PENTAMIDINE (PENTAMIDINE) [Concomitant]
  5. BACTRIM [Concomitant]
  6. RIFAMPICIN (RIFAMPICIN) [Concomitant]
  7. ISONIAZID [Concomitant]
  8. PYRAZINAMIDE [Concomitant]
  9. ETHAMBUTOL (ETHAMBUTOL) [Concomitant]

REACTIONS (5)
  - ATYPICAL MYCOBACTERIAL INFECTION [None]
  - CANDIDIASIS [None]
  - IMMUNE RECONSTITUTION SYNDROME [None]
  - MUCOSAL INFLAMMATION [None]
  - PNEUMOCYSTIS JIROVECI PNEUMONIA [None]
